FAERS Safety Report 23139846 (Version 2)
Quarter: 2023Q4

REPORT INFORMATION
  Report Type: Spontaneous
  Country: US (occurrence: US)
  Receive Date: 20231102
  Receipt Date: 20231116
  Transmission Date: 20240109
  Serious: Yes (Life-Threatening, Hospitalization)
  Sender: FDA-Public Use
  Company Number: US-TEVA-2023-US-2940327

PATIENT
  Age: 63 Year
  Sex: Female

DRUGS (1)
  1. PREDNISONE [Suspect]
     Active Substance: PREDNISONE
     Indication: Asthma-chronic obstructive pulmonary disease overlap syndrome
     Route: 065

REACTIONS (5)
  - Acute respiratory failure [Unknown]
  - Metabolic encephalopathy [Unknown]
  - Strongyloidiasis [Unknown]
  - Pseudomonas infection [Unknown]
  - Septic shock [Unknown]
